FAERS Safety Report 21548145 (Version 9)
Quarter: 2024Q1

REPORT INFORMATION
  Report Type: Spontaneous
  Country: US (occurrence: US)
  Receive Date: 20221103
  Receipt Date: 20240110
  Transmission Date: 20240410
  Serious: No
  Sender: FDA-Public Use
  Company Number: US-PFIZER INC-2020234095

PATIENT
  Age: 71 Year
  Sex: Female

DRUGS (2)
  1. PREMARIN [Suspect]
     Active Substance: ESTROGENS, CONJUGATED
     Indication: Atrophic vulvovaginitis
     Dosage: UNK (APPLY 1/4 APPLICATOR 3 TIMES A WEEK PER VAGINA FOR 90 DAYS)
     Route: 067
  2. PREMARIN [Suspect]
     Active Substance: ESTROGENS, CONJUGATED
     Dosage: UNK ( INSERT 0.5 APPLICATOR(S)FUL 3 TIMES A WEEK BY VAGINAL ROUTE)
     Route: 067

REACTIONS (3)
  - Product prescribing error [Unknown]
  - Drug dispensed to wrong patient [Unknown]
  - Off label use [Unknown]
